FAERS Safety Report 4992519-X (Version None)
Quarter: 2006Q1

REPORT INFORMATION
  Report Type: 
  Country: None (occurrence: None)
  Receive Date: 20060314
  Receipt Date: 20051228
  Transmission Date: 20060701
  Serious: Yes (Hospitalization)
  Sender: FDA-Public Use
  Company Number: 2005-02651

PATIENT
  Age: 67 Year
  Sex: Male

DRUGS (12)
  1. VELCADE [Suspect]
     Indication: MULTIPLE MYELOMA
  2. GLIPIZIDE [Suspect]
     Dosage: 10.00 MG,BID
  3. AVANDIA [Suspect]
     Dosage: 8.00 MG,QD
  4. LIPITOR [Concomitant]
  5. POTASSIUM CHLORIDE [Concomitant]
  6. ASPIRIN [Concomitant]
  7. COUMADIN [Concomitant]
  8. NEXIUM [Concomitant]
  9. DIGOXIN [Concomitant]
  10. LASIX [Concomitant]
  11. LISINOPRIL [Concomitant]
  12. METOPROLOL SUCCINATE [Concomitant]

REACTIONS (9)
  - DEHYDRATION [None]
  - DIARRHOEA [None]
  - FAECAL INCONTINENCE [None]
  - HYPOGLYCAEMIA [None]
  - NAUSEA [None]
  - ORAL INTAKE REDUCED [None]
  - ORTHOSTATIC HYPOTENSION [None]
  - SYNCOPE [None]
  - VOMITING [None]
